FAERS Safety Report 12872708 (Version 3)
Quarter: 2016Q4

REPORT INFORMATION
  Report Type: Spontaneous
  Country: JP (occurrence: JP)
  Receive Date: 20161021
  Receipt Date: 20161220
  Transmission Date: 20170207
  Serious: Yes (Other)
  Sender: FDA-Public Use
  Company Number: JP-JT-EVA201602427KERYXP-001

PATIENT
  Age: 57 Year
  Sex: Female
  Weight: 59 kg

DRUGS (18)
  1. FAMOTIDINE DCI [Concomitant]
     Active Substance: FAMOTIDINE
     Dosage: 20 MG, QD
     Route: 048
  2. ALLEGRA [Concomitant]
     Active Substance: FEXOFENADINE HYDROCHLORIDE
     Dosage: 60 MG, BID
     Route: 048
  3. MYSLEE [Concomitant]
     Active Substance: ZOLPIDEM TARTRATE
     Dosage: 5 MG, QD
     Route: 048
  4. RISUMIC [Concomitant]
     Active Substance: AMEZINIUM METILSULFATE
     Dosage: UNK
     Route: 048
  5. RIONA [Suspect]
     Active Substance: FERRIC CITRATE ANHYDROUS
     Indication: PRODUCT USED FOR UNKNOWN INDICATION
     Dosage: 250 MG, TID
     Route: 048
  6. FUTHAN [Suspect]
     Active Substance: NAFAMOSTAT MESYLATE
     Indication: PRODUCT USED FOR UNKNOWN INDICATION
     Dosage: UNK
     Route: 065
  7. DEPAS [Concomitant]
     Active Substance: ETIZOLAM
     Dosage: 0.5 MG, QD
     Route: 048
  8. CALONAL [Concomitant]
     Active Substance: ACETAMINOPHEN
     Dosage: 400 MG, TID
     Route: 048
  9. OXAROL [Concomitant]
     Active Substance: MAXACALCITOL
     Dosage: 5 MICRO-G, 3 TIMES/WK
     Route: 042
  10. CARVEDILOL. [Concomitant]
     Active Substance: CARVEDILOL
     Dosage: 10 MG, UNK
     Route: 048
  11. RENAGEL [Concomitant]
     Active Substance: SEVELAMER HYDROCHLORIDE
     Dosage: 2250 MG, QD
     Route: 048
  12. NESP [Concomitant]
     Active Substance: DARBEPOETIN ALFA
     Dosage: 5 MICRO-G, QWK
     Route: 042
  13. WARFARIN [Concomitant]
     Active Substance: WARFARIN
     Dosage: 0.5 MG, QD
     Route: 048
  14. FOSRENOL [Concomitant]
     Active Substance: LANTHANUM CARBONATE
     Dosage: 500 MG, TID
     Route: 048
  15. PARAMIDIN [Concomitant]
     Active Substance: BUCOLOME
     Dosage: 300 MG, QD
     Route: 048
  16. AZILVA [Concomitant]
     Active Substance: AZILSARTAN KAMEDOXOMIL
     Dosage: 40 MG, QD
     Route: 048
  17. NORVASC [Concomitant]
     Active Substance: AMLODIPINE BESYLATE
     Dosage: 5 MG, QD
     Route: 048
  18. BONALON [Concomitant]
     Active Substance: ALENDRONATE SODIUM
     Dosage: 900 MICRO-G, QMO
     Route: 041

REACTIONS (1)
  - Anaphylactic shock [Recovered/Resolved]

NARRATIVE: CASE EVENT DATE: 20160913
